FAERS Safety Report 8405071-3 (Version None)
Quarter: 2012Q2

REPORT INFORMATION
  Report Type: 
  Country: None (occurrence: None)
  Receive Date: 20120601
  Receipt Date: 20120518
  Transmission Date: 20120825
  Serious: Yes (Other)
  Sender: FDA-Public Use
  Company Number: CHPA2012US011346

PATIENT
  Sex: Female

DRUGS (3)
  1. EXCEDRIN EXTRA STRENGTH TABLETS [Suspect]
     Indication: HEADACHE
     Dosage: 0.5 DF, QD AS NEEDED
     Route: 048
  2. VITAMIN A [Concomitant]
     Indication: HEADACHE
     Dosage: UNK
  3. EXCEDRIN TENSION HEADACHE CAPLETS [Concomitant]
     Indication: HEADACHE
     Dosage: 0.5 DF, QD
     Route: 048

REACTIONS (3)
  - UNDERDOSE [None]
  - ULCER [None]
  - WRONG TECHNIQUE IN DRUG USAGE PROCESS [None]
